FAERS Safety Report 25052397 (Version 2)
Quarter: 2025Q1

REPORT INFORMATION
  Report Type: Spontaneous
  Country: FR (occurrence: FR)
  Receive Date: 20250307
  Receipt Date: 20250319
  Transmission Date: 20250409
  Serious: Yes (Life-Threatening, Other)
  Sender: B BRAUN
  Company Number: FR-B.Braun Medical Inc.-2172406

PATIENT
  Age: 71 Year
  Sex: Male
  Weight: 88 kg

DRUGS (15)
  1. ACETAMINOPHEN [Suspect]
     Active Substance: ACETAMINOPHEN
     Indication: Pain
     Dates: start: 20241230, end: 20250105
  2. PROPOFOL [Suspect]
     Active Substance: PROPOFOL
  3. ERYTHROMYCIN [Suspect]
     Active Substance: ERYTHROMYCIN
  4. INSULIN NOS [Suspect]
     Active Substance: INSULIN NOS
  5. ENOXAPARIN SODIUM [Suspect]
     Active Substance: ENOXAPARIN SODIUM
  6. DIAZEPAM [Suspect]
     Active Substance: DIAZEPAM
  7. MICAFUNGIN [Suspect]
     Active Substance: MICAFUNGIN SODIUM
  8. LINEZOLID [Suspect]
     Active Substance: LINEZOLID
  9. OCTREOTIDE [Suspect]
     Active Substance: OCTREOTIDE
  10. NEFOPAM [Suspect]
     Active Substance: NEFOPAM
  11. OXYCODONE [Suspect]
     Active Substance: OXYCODONE
  12. PANTOPRAZOLE [Suspect]
     Active Substance: PANTOPRAZOLE
  13. PIPERACILLIN SODIUM\TAZOBACTAM SODIUM [Suspect]
     Active Substance: PIPERACILLIN SODIUM\TAZOBACTAM SODIUM
  14. HEPARIN SODIUM [Suspect]
     Active Substance: HEPARIN SODIUM
  15. MEROPENEM [Suspect]
     Active Substance: MEROPENEM

REACTIONS (2)
  - Anti factor V antibody [Not Recovered/Not Resolved]
  - Shock haemorrhagic [Recovering/Resolving]
